FAERS Safety Report 23800085 (Version 4)
Quarter: 2024Q3

REPORT INFORMATION
  Report Type: Report from Study
  Country: US (occurrence: US)
  Receive Date: 20240430
  Receipt Date: 20240820
  Transmission Date: 20241017
  Serious: No
  Sender: SANDOZ
  Company Number: US-SANDOZ-SDZ2024US032103

PATIENT
  Sex: Female

DRUGS (6)
  1. OMNITROPE [Suspect]
     Active Substance: SOMATROPIN
     Dosage: 0.4 MG, QD
     Route: 058
  2. OMNITROPE [Suspect]
     Active Substance: SOMATROPIN
     Dosage: 0.4 MG, QD
     Route: 058
  3. OMNITROPE [Suspect]
     Active Substance: SOMATROPIN
     Dosage: 0.4 MG/KG 2 DOSE EVERY N/A N/A
     Route: 030
     Dates: start: 20231111
  4. OMNITROPE [Suspect]
     Active Substance: SOMATROPIN
     Dosage: 0.4 MG/KG 2 DOSE EVERY N/A N/A
     Route: 030
     Dates: start: 20231111
  5. OMNITROPE [Suspect]
     Active Substance: SOMATROPIN
     Indication: Hypopituitarism
     Dosage: 0.6 MG 2 DOSE EVERY N/A N/A
     Route: 030
     Dates: start: 20231116
  6. OMNITROPE [Suspect]
     Active Substance: SOMATROPIN
     Indication: Hypopituitarism
     Dosage: 0.6 MG 2 DOSE EVERY N/A N/A
     Route: 030
     Dates: start: 20231116

REACTIONS (4)
  - Product dose omission issue [Unknown]
  - Circumstance or information capable of leading to medication error [Unknown]
  - Device mechanical issue [Unknown]
  - Liquid product physical issue [Unknown]
